FAERS Safety Report 8612675-1 (Version None)
Quarter: 2012Q3

REPORT INFORMATION
  Report Type: 
  Country: None (occurrence: None)
  Receive Date: 20120822
  Receipt Date: 20111108
  Transmission Date: 20120928
  Serious: No
  Sender: FDA-Public Use
  Company Number: US-ASTRAZENECA-2011SE57904

PATIENT
  Age: 63 Year
  Sex: Male

DRUGS (4)
  1. NEXIUM [Suspect]
     Dosage: 2 PER DAY
     Route: 048
  2. TOPROL-XL [Suspect]
     Route: 048
  3. SYMBICORT [Suspect]
     Route: 055
  4. NEXIUM [Suspect]
     Dosage: 1 PER DAY
     Route: 048

REACTIONS (3)
  - CHRONIC OBSTRUCTIVE PULMONARY DISEASE [None]
  - ABDOMINAL DISCOMFORT [None]
  - RESTLESS LEGS SYNDROME [None]
